FAERS Safety Report 11824464 (Version 2)
Quarter: 2015Q4

REPORT INFORMATION
  Report Type: Report from Study
  Country: MX (occurrence: MX)
  Receive Date: 20151210
  Receipt Date: 20151224
  Transmission Date: 20160305
  Serious: Yes (Disabling)
  Sender: FDA-Public Use
  Company Number: PHHY2015MX161777

PATIENT
  Sex: Female
  Weight: 80 kg

DRUGS (1)
  1. ULTIBRO BREEZHALER [Suspect]
     Active Substance: GLYCOPYRRONIUM\INDACATEROL
     Indication: LUNG DISORDER
     Dosage: 50 UG, QD
     Route: 065

REACTIONS (5)
  - Dysstasia [Unknown]
  - Arthralgia [Unknown]
  - Chondropathy [Not Recovered/Not Resolved]
  - Joint swelling [Recovering/Resolving]
  - Asthenia [Recovering/Resolving]
